FAERS Safety Report 8255348-X (Version None)
Quarter: 2012Q2

REPORT INFORMATION
  Report Type: 
  Country: None (occurrence: None)
  Receive Date: 20120403
  Receipt Date: 20120327
  Transmission Date: 20120825
  Serious: Yes (Death, Other)
  Sender: FDA-Public Use
  Company Number: US-PURDUE-USA-2012-0084271

PATIENT
  Age: 51 Year
  Sex: Male

DRUGS (2)
  1. OXYCODONE HCL [Suspect]
     Indication: DRUG ABUSE
     Dosage: UNK UNK, SEE TEXT
  2. OXYCONTIN [Suspect]
     Indication: DRUG ABUSE
     Dosage: UNK, SEE TEXT

REACTIONS (4)
  - DRUG ABUSE [None]
  - GUN SHOT WOUND [None]
  - VICTIM OF HOMICIDE [None]
  - DRUG DEPENDENCE [None]
